FAERS Safety Report 4981370-2 (Version None)
Quarter: 2006Q2

REPORT INFORMATION
  Report Type: 
  Country: None (occurrence: None)
  Receive Date: 20060424
  Receipt Date: 20050504
  Transmission Date: 20061013
  Serious: Yes (Hospitalization)
  Sender: FDA-Public Use
  Company Number: CA-MERCK-0505CAN00057

PATIENT
  Age: 58 Year
  Sex: Male
  Weight: 75 kg

DRUGS (5)
  1. VIOXX [Suspect]
     Indication: ANALGESIC EFFECT
     Route: 048
     Dates: start: 20000101
  2. VIOXX [Suspect]
     Route: 048
     Dates: start: 20000918
  3. VIOXX [Suspect]
     Indication: PROSTATIC PAIN
     Route: 048
     Dates: start: 20000101
  4. VIOXX [Suspect]
     Route: 048
     Dates: start: 20000918
  5. ZALEPLON [Concomitant]
     Route: 065
     Dates: start: 20000918

REACTIONS (5)
  - ACUTE MYOCARDIAL INFARCTION [None]
  - CORONARY ARTERY DISEASE [None]
  - CORONARY ARTERY STENOSIS [None]
  - HYPERCHOLESTEROLAEMIA [None]
  - VERTIGO [None]
